FAERS Safety Report 18319523 (Version 2)
Quarter: 2020Q4

REPORT INFORMATION
  Report Type: Spontaneous
  Country: US (occurrence: US)
  Receive Date: 20200929
  Receipt Date: 20201016
  Transmission Date: 20210113
  Serious: No
  Sender: FDA-Public Use
  Company Number: US-009507513-2009USA009085

PATIENT
  Age: 23 Year

DRUGS (2)
  1. TOBRAMYCIN. [Concomitant]
     Active Substance: TOBRAMYCIN
     Indication: MEDICAL DEVICE SITE INFECTION
     Dosage: 320 MILLIGRAM (7MG/KG), DAILY
     Route: 042
  2. ZERBAXA [Suspect]
     Active Substance: CEFTOLOZANE SULFATE\TAZOBACTAM SODIUM
     Indication: MEDICAL DEVICE SITE INFECTION
     Dosage: 3 G PER 500 ML INFUSED OVER 12 HOURS, EVERY 12 HOURS

REACTIONS (1)
  - Off label use [Unknown]
